FAERS Safety Report 17827083 (Version 1)
Quarter: 2020Q2

REPORT INFORMATION
  Report Type: Spontaneous
  Country: HR (occurrence: HR)
  Receive Date: 20200526
  Receipt Date: 20200526
  Transmission Date: 20200714
  Serious: Yes (Hospitalization, Other)
  Sender: FDA-Public Use
  Company Number: HR-ABBVIE-20K-216-3414282-00

PATIENT
  Age: 62 Year
  Sex: Female

DRUGS (4)
  1. VENETOCLAX. [Suspect]
     Active Substance: VENETOCLAX
     Indication: CHRONIC LYMPHOCYTIC LEUKAEMIA
     Dosage: GRADUAL INCREASE OF DOSE
     Route: 048
     Dates: start: 201906
  2. VENETOCLAX. [Suspect]
     Active Substance: VENETOCLAX
     Dosage: GRADUAL INCREASE OF DOSE
     Route: 048
  3. RITUXIMAB. [Concomitant]
     Active Substance: RITUXIMAB
     Indication: CHRONIC LYMPHOCYTIC LEUKAEMIA
     Dates: start: 201906
  4. VENETOCLAX. [Suspect]
     Active Substance: VENETOCLAX
     Route: 048

REACTIONS (4)
  - Hypogammaglobulinaemia [Unknown]
  - Tumour lysis syndrome [Recovering/Resolving]
  - Respiratory tract infection [Recovered/Resolved]
  - Meningitis aseptic [Recovered/Resolved]

NARRATIVE: CASE EVENT DATE: 201906
